FAERS Safety Report 9158099 (Version 2)
Quarter: 2013Q2

REPORT INFORMATION
  Report Type: Report from Study
  Country: FR (occurrence: FR)
  Receive Date: 20130312
  Receipt Date: 20130412
  Transmission Date: 20140414
  Serious: Yes (Other)
  Sender: FDA-Public Use
  Company Number: FR-ROCHE-1198389

PATIENT
  Age: 38 Year
  Sex: Female
  Weight: 63 kg

DRUGS (18)
  1. TOCILIZUMAB [Suspect]
     Indication: RHEUMATOID ARTHRITIS
     Dosage: LAST INFUSION PRIOR TO SAE WAS ON 05/JUN/2012
     Route: 042
     Dates: start: 20111109
  2. TOCILIZUMAB [Suspect]
     Route: 042
     Dates: start: 20111213
  3. TOCILIZUMAB [Suspect]
     Route: 042
     Dates: start: 20120110
  4. TOCILIZUMAB [Suspect]
     Route: 042
     Dates: start: 20120207
  5. TOCILIZUMAB [Suspect]
     Route: 042
     Dates: start: 20120306
  6. TOCILIZUMAB [Suspect]
     Route: 042
     Dates: start: 20120410
  7. TOCILIZUMAB [Suspect]
     Route: 042
     Dates: start: 20120605
  8. TOCILIZUMAB [Suspect]
     Route: 042
     Dates: start: 20120702
  9. TOCILIZUMAB [Suspect]
     Route: 042
     Dates: start: 20120928
  10. TRAMADOL [Suspect]
     Indication: PRODUCT USED FOR UNKNOWN INDICATION
     Route: 065
  11. METHOTREXATE [Concomitant]
     Route: 065
  12. METHOTREXATE [Concomitant]
     Route: 065
  13. METHOTREXATE [Concomitant]
     Route: 065
     Dates: start: 20130306
  14. CORTANCYL [Concomitant]
     Route: 065
  15. CORTANCYL [Concomitant]
     Route: 065
  16. BI-PROFENID [Concomitant]
     Route: 065
  17. ESOMEPRAZOLE [Concomitant]
     Route: 065
  18. SPECIAFOLDINE [Concomitant]

REACTIONS (5)
  - Presyncope [Recovered/Resolved]
  - Drug intolerance [Not Recovered/Not Resolved]
  - Vertigo [Recovered/Resolved]
  - Nausea [Recovered/Resolved]
  - Weight increased [Not Recovered/Not Resolved]
